FAERS Safety Report 7979163 (Version 2)
Quarter: 2012Q4

REPORT INFORMATION
  Report Type: 
  Country: US (occurrence: US)
  Receive Date: 20110607
  Receipt Date: 20121015
  Transmission Date: 20130627
  Serious: Yes (Hospitalization)
  Sender: FDA-Public Use
  Company Number: US-ASTRAZENECA-2011SE32304

PATIENT
  Age: 53 Year
  Sex: Female
  Weight: 88.5 kg

DRUGS (12)
  1. SEROQUEL XR [Suspect]
     Indication: DEPRESSION
     Route: 048
  2. SEROQUEL XR [Suspect]
     Indication: SLEEP DISORDER
     Route: 048
  3. SYMBICORT PMDI [Suspect]
     Dosage: as required
     Route: 055
  4. NEXIUM [Suspect]
     Route: 048
  5. COMBIVENT [Concomitant]
  6. PRILOSEC [Concomitant]
  7. KLONOPIN [Concomitant]
  8. SYNTHROID [Concomitant]
  9. SABELLA [Concomitant]
  10. LISINOPRIL [Concomitant]
  11. TRASADONE [Concomitant]
  12. ANTIBIOTICS [Concomitant]

REACTIONS (12)
  - Hepatitis viral [Unknown]
  - Pneumonia viral [Unknown]
  - Fibromyalgia [Unknown]
  - Depression [Unknown]
  - Hypertension [Unknown]
  - Addison^s disease [Unknown]
  - Basedow^s disease [Unknown]
  - Asthma [Unknown]
  - Bronchitis [Unknown]
  - Syncope [Unknown]
  - Drug ineffective [Unknown]
  - Intentional drug misuse [Unknown]
